FAERS Safety Report 13647223 (Version 1)
Quarter: 2017Q2

REPORT INFORMATION
  Report Type: Spontaneous
  Country: US (occurrence: US)
  Receive Date: 20170613
  Receipt Date: 20170613
  Transmission Date: 20170830
  Serious: No
  Sender: FDA-Public Use
  Company Number: US-BAYER-2017-113190

PATIENT
  Age: 53 Year
  Sex: Male
  Weight: 117.96 kg

DRUGS (1)
  1. MIRALAX [Suspect]
     Active Substance: POLYETHYLENE GLYCOL 3350
     Indication: GASTROINTESTINAL DISORDER
     Dosage: UNK
     Route: 048
     Dates: start: 2015

REACTIONS (4)
  - Vomiting [Recovered/Resolved]
  - Poor quality drug administered [Unknown]
  - Abdominal pain upper [Recovering/Resolving]
  - Product contamination physical [None]

NARRATIVE: CASE EVENT DATE: 20170611
